FAERS Safety Report 10071191 (Version 2)
Quarter: 2014Q2

REPORT INFORMATION
  Report Type: Spontaneous
  Country: US (occurrence: US)
  Receive Date: 20140410
  Receipt Date: 20140530
  Transmission Date: 20141212
  Serious: Yes (Death, Life-Threatening, Hospitalization, Disabling, Other)
  Sender: FDA-Public Use
  Company Number: US-MERCK-1404USA005930

PATIENT
  Sex: Male
  Weight: 113.38 kg

DRUGS (1)
  1. JANUVIA [Suspect]
     Indication: TYPE 2 DIABETES MELLITUS
     Dosage: 100 MG, QD
     Route: 048
     Dates: start: 20101120, end: 20120920

REACTIONS (18)
  - Pancreatic carcinoma [Unknown]
  - Death [Fatal]
  - Biliary drainage [Unknown]
  - Cardiac disorder [Unknown]
  - Bile duct stenosis [Unknown]
  - Bile duct stent insertion [Unknown]
  - Pancreatitis [Unknown]
  - Pancreatitis acute [Unknown]
  - Gallbladder disorder [Unknown]
  - Nephrolithiasis [Unknown]
  - Diverticulum [Unknown]
  - Hypertension [Unknown]
  - Hyperlipidaemia [Unknown]
  - Coronary artery disease [Unknown]
  - Coronary arterial stent insertion [Unknown]
  - Glaucoma [Unknown]
  - Hepatic steatosis [Unknown]
  - Splenomegaly [Unknown]
